FAERS Safety Report 6850693-4 (Version None)
Quarter: 2010Q3

REPORT INFORMATION
  Report Type: 
  Country: None (occurrence: None)
  Receive Date: 20100716
  Receipt Date: 20071020
  Transmission Date: 20110219
  Serious: No
  Sender: FDA-Public Use
  Company Number: US-PFIZER INC-2007089501

PATIENT
  Sex: Female
  Weight: 62.3 kg

DRUGS (3)
  1. CHANTIX [Suspect]
     Indication: SMOKING CESSATION THERAPY
     Dates: start: 20071003, end: 20071003
  2. XANAX [Interacting]
     Indication: ANXIETY
  3. XANAX [Interacting]
     Indication: SLEEP DISORDER

REACTIONS (3)
  - AMNESIA [None]
  - DRUG INTERACTION [None]
  - FEELING ABNORMAL [None]
